FAERS Safety Report 5165358-7 (Version None)
Quarter: 2006Q4

REPORT INFORMATION
  Report Type: 
  Country: None (occurrence: None)
  Receive Date: 20061206
  Receipt Date: 20061023
  Transmission Date: 20070319
  Serious: Yes (Other)
  Sender: FDA-Public Use
  Company Number: PHRM2006FR02895

PATIENT
  Age: 37 Year
  Sex: Female

DRUGS (7)
  1. SKENAN [Concomitant]
     Indication: PAIN
     Dosage: 20 MG, BID
     Route: 048
  2. ACTISKENAN [Concomitant]
     Indication: PAIN
     Dosage: 10 MG, BID
     Route: 048
  3. VOLTARENE LP [Suspect]
     Indication: SCIATICA
     Dosage: 75 MG, BID
     Route: 048
     Dates: start: 20061009, end: 20061014
  4. TAXOL [Concomitant]
     Indication: BREAST CANCER
     Dosage: 87 MG/M2 ON DAY 1 AND DAY 8
     Dates: start: 20061002, end: 20061016
  5. GEMZAR [Concomitant]
     Indication: BREAST CANCER
     Dosage: 1 DF ON DAY 1, 8 AND 21
     Dates: start: 20061002, end: 20061016
  6. MYOLASTAN [Concomitant]
     Route: 048
  7. OMEPRAZOLE [Concomitant]

REACTIONS (10)
  - ALANINE AMINOTRANSFERASE INCREASED [None]
  - ASPARTATE AMINOTRANSFERASE INCREASED [None]
  - BILE DUCT OBSTRUCTION [None]
  - BILIARY DRAINAGE [None]
  - BLOOD ALKALINE PHOSPHATASE INCREASED [None]
  - BLOOD BILIRUBIN INCREASED [None]
  - CHOLESTASIS [None]
  - CYTOLYTIC HEPATITIS [None]
  - GAMMA-GLUTAMYLTRANSFERASE INCREASED [None]
  - JAUNDICE [None]
